FAERS Safety Report 18436238 (Version 2)
Quarter: 2021Q1

REPORT INFORMATION
  Report Type: Spontaneous
  Country: US (occurrence: US)
  Receive Date: 20201028
  Receipt Date: 20210308
  Transmission Date: 20210419
  Serious: No
  Sender: FDA-Public Use
  Company Number: US-PFIZER INC-2020409772

PATIENT
  Age: 55 Year
  Sex: Female

DRUGS (1)
  1. CLEOCIN [Suspect]
     Active Substance: CLINDAMYCIN PHOSPHATE
     Indication: HIDRADENITIS
     Dosage: UNK, 2X/DAY [TWICE DAILY TOPICALLY TO AFFECTED AREAS]
     Route: 061

REACTIONS (2)
  - Off label use [Unknown]
  - Drug ineffective for unapproved indication [Unknown]
